FAERS Safety Report 4341464-1 (Version None)
Quarter: 2004Q2

REPORT INFORMATION
  Report Type: 
  Country: None (occurrence: None)
  Receive Date: 20040420
  Receipt Date: 20040310
  Transmission Date: 20050107
  Serious: Yes (Hospitalization)
  Sender: FDA-Public Use
  Company Number: 200410982FR

PATIENT
  Age: 45 Year
  Sex: Male

DRUGS (8)
  1. TAXOTERE [Suspect]
     Route: 042
     Dates: start: 20040215, end: 20040215
  2. CISPLATIN [Suspect]
     Dates: start: 20040215, end: 20040215
  3. RITONAVIR [Suspect]
     Indication: HIV INFECTION
  4. ZERIT                                   /USA/ [Concomitant]
  5. EPIVIR [Concomitant]
  6. CRIXIVAN                                /SWE/ [Concomitant]
  7. VIDEX                                   /USA/ [Concomitant]
  8. KALETRA [Concomitant]

REACTIONS (13)
  - APLASIA [None]
  - BLOOD CREATINE PHOSPHOKINASE INCREASED [None]
  - DERMATOMYOSITIS [None]
  - DRUG INTERACTION [None]
  - FEBRILE NEUTROPENIA [None]
  - HAEMOGLOBIN DECREASED [None]
  - NEUTROPENIA [None]
  - ONYCHOLYSIS [None]
  - PARANEOPLASTIC SYNDROME [None]
  - PLATELET COUNT DECREASED [None]
  - PNEUMONITIS [None]
  - SKIN INJURY [None]
  - TOXIC SKIN ERUPTION [None]
